FAERS Safety Report 18733269 (Version 5)
Quarter: 2021Q1

REPORT INFORMATION
  Report Type: Report from Study
  Country: None (occurrence: CA)
  Receive Date: 20210112
  Receipt Date: 20210311
  Transmission Date: 20210419
  Serious: Yes (Other)
  Sender: FDA-Public Use
  Company Number: CA-ABBVIE-21K-028-3722873-00

PATIENT
  Age: 13 Year
  Sex: Male

DRUGS (4)
  1. HUMIRA [Suspect]
     Active Substance: ADALIMUMAB
     Indication: CROHN^S DISEASE
     Route: 058
     Dates: start: 20201204, end: 20210210
  2. HUMIRA [Suspect]
     Active Substance: ADALIMUMAB
     Route: 058
     Dates: start: 2021
  3. ATIVAN [Suspect]
     Active Substance: LORAZEPAM
     Indication: PRODUCT USED FOR UNKNOWN INDICATION
     Route: 065
  4. HUMIRA [Suspect]
     Active Substance: ADALIMUMAB
     Route: 058
     Dates: start: 20210211, end: 2021

REACTIONS (23)
  - Intentional self-injury [Recovered/Resolved]
  - Lymphadenopathy [Unknown]
  - Somnolence [Unknown]
  - Injection site pain [Unknown]
  - Pain [Not Recovered/Not Resolved]
  - Crohn^s disease [Not Recovered/Not Resolved]
  - Mass [Unknown]
  - Head injury [Not Recovered/Not Resolved]
  - Illness [Unknown]
  - Breast mass [Unknown]
  - Panic reaction [Unknown]
  - Autophobia [Not Recovered/Not Resolved]
  - Fear of injection [Unknown]
  - Rash papular [Unknown]
  - Arthralgia [Unknown]
  - Suicidal ideation [Not Recovered/Not Resolved]
  - Hypophagia [Unknown]
  - Impaired quality of life [Unknown]
  - Abdominal pain [Unknown]
  - Malaise [Unknown]
  - Stress [Not Recovered/Not Resolved]
  - Pain in jaw [Recovered/Resolved]
  - Nausea [Unknown]

NARRATIVE: CASE EVENT DATE: 202012
